FAERS Safety Report 13771087 (Version 1)
Quarter: 2017Q3

REPORT INFORMATION
  Report Type: Spontaneous
  Country: US (occurrence: US)
  Receive Date: 20170720
  Receipt Date: 20170720
  Transmission Date: 20171127
  Serious: No
  Sender: FDA-Public Use
  Company Number: US-TEVA-691301USA

PATIENT
  Age: 78 Year
  Sex: Female

DRUGS (8)
  1. FISH OIL [Concomitant]
     Active Substance: FISH OIL
  2. LEVOTHYROXINE. [Concomitant]
     Active Substance: LEVOTHYROXINE
  3. METRONIDAZOLE. [Concomitant]
     Active Substance: METRONIDAZOLE
  4. VITAMIN E [Concomitant]
     Active Substance: .ALPHA.-TOCOPHEROL
  5. LOSARTAN. [Concomitant]
     Active Substance: LOSARTAN
  6. LISINOPRIL. [Suspect]
     Active Substance: LISINOPRIL
  7. LISINOPRIL. [Suspect]
     Active Substance: LISINOPRIL
     Route: 065
     Dates: start: 20160818
  8. CIPROFLOXACIN. [Suspect]
     Active Substance: CIPROFLOXACIN
     Route: 065
     Dates: start: 20160818

REACTIONS (2)
  - Cough [Recovered/Resolved]
  - Dizziness [Unknown]

NARRATIVE: CASE EVENT DATE: 201608
